FAERS Safety Report 6141455-4 (Version None)
Quarter: 2009Q2

REPORT INFORMATION
  Report Type: 
  Country: None (occurrence: None)
  Receive Date: 20090402
  Receipt Date: 20090324
  Transmission Date: 20091009
  Serious: Yes (Life-Threatening, Hospitalization)
  Sender: FDA-Public Use
  Company Number: US-AMGEN-US335885

PATIENT
  Sex: Female

DRUGS (25)
  1. NPLATE [Suspect]
     Indication: IDIOPATHIC THROMBOCYTOPENIC PURPURA
     Dates: start: 20081222, end: 20090119
  2. CORTICOSTEROIDS [Concomitant]
     Route: 065
  3. TYLENOL [Concomitant]
  4. DEXTROSE 5% AND SODIUM CHLORIDE 0.45% IN PLASTIC CONTAINER [Concomitant]
  5. IMODIUM [Concomitant]
  6. ATIVAN [Concomitant]
  7. ZOFRAN [Concomitant]
  8. ACYCLOVIR [Concomitant]
  9. ALBUTEROL [Concomitant]
  10. ASCORBIC ACID [Concomitant]
  11. CLINDAMYCIN HCL [Concomitant]
  12. MYCELEX [Concomitant]
  13. DANAZOL [Concomitant]
  14. DECADRON [Concomitant]
  15. BENADRYL [Concomitant]
  16. DIFLUCAN [Concomitant]
  17. LASIX [Concomitant]
  18. NEURONTIN [Concomitant]
  19. HYDROCORTISONE [Concomitant]
  20. IMMUNOGLOBULINS [Concomitant]
     Route: 042
  21. INSULIN [Concomitant]
  22. ATROVENT [Concomitant]
  23. LACTOBACILLUS ACIDOPHILUS [Concomitant]
  24. FLAGYL [Concomitant]
  25. MORPHINE [Concomitant]

REACTIONS (2)
  - CHRONIC LYMPHOCYTIC LEUKAEMIA [None]
  - THROMBOCYTOPENIA [None]
